FAERS Safety Report 9210808 (Version 1)
Quarter: 2013Q2

REPORT INFORMATION
  Report Type: Spontaneous
  Country: TR (occurrence: TR)
  Receive Date: 20130404
  Receipt Date: 20130404
  Transmission Date: 20140414
  Serious: Yes (Hospitalization)
  Sender: FDA-Public Use
  Company Number: PHHY2013TR031383

PATIENT
  Age: 55 Year
  Sex: Male

DRUGS (1)
  1. BUPROPION [Suspect]
     Indication: SMOKING CESSATION THERAPY

REACTIONS (16)
  - Thrombotic thrombocytopenic purpura [Unknown]
  - Diarrhoea [Unknown]
  - Malaise [Unknown]
  - Renal failure acute [Unknown]
  - Confusional state [Recovered/Resolved]
  - Abnormal behaviour [Recovered/Resolved]
  - Mucous membrane disorder [Unknown]
  - Ocular icterus [Recovered/Resolved]
  - Nervous system disorder [Recovered/Resolved]
  - Haemolytic anaemia [Unknown]
  - Thrombocytopenia [Unknown]
  - Loss of consciousness [Recovered/Resolved]
  - Anxiety [Recovered/Resolved]
  - Pneumonia [Unknown]
  - Grand mal convulsion [Recovered/Resolved]
  - Depressed mood [Recovered/Resolved]
